FAERS Safety Report 24992916 (Version 2)
Quarter: 2025Q1

REPORT INFORMATION
  Report Type: Spontaneous
  Country: CA (occurrence: CA)
  Receive Date: 20250221
  Receipt Date: 20250305
  Transmission Date: 20250408
  Serious: Yes (Other)
  Sender: SANDOZ
  Company Number: CA-SANDOZ-SDZ2025CA009567

PATIENT
  Age: 53 Year
  Sex: Male

DRUGS (239)
  1. ADALIMUMAB [Suspect]
     Active Substance: ADALIMUMAB
     Indication: Colitis ulcerative
     Route: 065
  2. ADALIMUMAB [Suspect]
     Active Substance: ADALIMUMAB
     Indication: Crohn^s disease
     Route: 058
  3. ADALIMUMAB [Suspect]
     Active Substance: ADALIMUMAB
     Indication: Crohn^s disease
     Route: 048
  4. ADALIMUMAB [Suspect]
     Active Substance: ADALIMUMAB
     Indication: Colitis ulcerative
  5. ALBENDAZOLE [Suspect]
     Active Substance: ALBENDAZOLE
     Indication: Colitis ulcerative
     Route: 042
  6. ALBENDAZOLE [Suspect]
     Active Substance: ALBENDAZOLE
     Indication: Deep vein thrombosis
     Route: 042
  7. ASACOL [Suspect]
     Active Substance: MESALAMINE
     Dosage: 1 DF, 1 EVERY 1 DAYS
     Route: 048
  8. ASACOL [Suspect]
     Active Substance: MESALAMINE
     Dosage: 1 DF, 1 EVERY 1 DAYS
     Route: 065
  9. ASACOL [Suspect]
     Active Substance: MESALAMINE
     Dosage: 1 DF, 1 EVERY 1 DAYS
     Route: 065
  10. ASACOL [Suspect]
     Active Substance: MESALAMINE
     Dosage: 12 DF,1 EVERY 1 DAYS
     Route: 065
  11. ASACOL [Suspect]
     Active Substance: MESALAMINE
     Dosage: 2.4 G, 1 EVERY 1 DAYS
     Route: 065
  12. ASACOL [Suspect]
     Active Substance: MESALAMINE
     Indication: Colitis ulcerative
     Dosage: 3 G, 1 EVERY 1 DAYS
     Route: 065
  13. ASACOL [Suspect]
     Active Substance: MESALAMINE
     Route: 065
  14. ASACOL [Suspect]
     Active Substance: MESALAMINE
     Route: 065
  15. ASACOL [Suspect]
     Active Substance: MESALAMINE
     Route: 065
  16. ASACOL [Suspect]
     Active Substance: MESALAMINE
     Dosage: 4.8 DF,1 EVERY 1 DAYS
     Route: 065
  17. ASACOL [Suspect]
     Active Substance: MESALAMINE
     Dosage: 4.8 DF,1 EVERY 1 DAYS
     Route: 065
  18. ASACOL [Suspect]
     Active Substance: MESALAMINE
     Route: 065
  19. ASACOL [Suspect]
     Active Substance: MESALAMINE
     Indication: Product used for unknown indication
     Route: 065
  20. ASACOL [Suspect]
     Active Substance: MESALAMINE
     Route: 065
  21. ASACOL [Suspect]
     Active Substance: MESALAMINE
     Route: 065
  22. ASPIRIN [Suspect]
     Active Substance: ASPIRIN
     Indication: Product used for unknown indication
     Route: 065
  23. ASPIRIN [Suspect]
     Active Substance: ASPIRIN
     Route: 065
  24. CANDESARTAN [Suspect]
     Active Substance: CANDESARTAN
     Route: 065
  25. CANDESARTAN [Suspect]
     Active Substance: CANDESARTAN
     Indication: Product used for unknown indication
     Route: 048
  26. AZD-1222 [Suspect]
     Active Substance: AZD-1222
     Route: 065
  27. AZD-1222 [Suspect]
     Active Substance: AZD-1222
     Route: 065
  28. AZD-1222 [Suspect]
     Active Substance: AZD-1222
     Indication: COVID-19 immunisation
     Route: 065
  29. AZD-1222 [Suspect]
     Active Substance: AZD-1222
     Route: 065
  30. AZD-1222 [Suspect]
     Active Substance: AZD-1222
     Route: 065
  31. AZD-1222 [Suspect]
     Active Substance: AZD-1222
     Route: 065
  32. AZD-1222 [Suspect]
     Active Substance: AZD-1222
     Route: 065
  33. AZD-1222 [Suspect]
     Active Substance: AZD-1222
     Route: 065
  34. AZD-1222 [Suspect]
     Active Substance: AZD-1222
     Route: 065
  35. AZD-1222 [Suspect]
     Active Substance: AZD-1222
     Route: 065
  36. AZD-1222 [Suspect]
     Active Substance: AZD-1222
     Route: 065
  37. AZD-1222 [Suspect]
     Active Substance: AZD-1222
     Route: 065
  38. AZD-1222 [Suspect]
     Active Substance: AZD-1222
     Route: 065
  39. CORTIFOAM [Suspect]
     Active Substance: HYDROCORTISONE ACETATE
     Indication: Colitis ulcerative
     Dosage: 1 DF, 1 EVERY 1 DAYS
     Route: 065
  40. CORTIFOAM [Suspect]
     Active Substance: HYDROCORTISONE ACETATE
     Dosage: 1 DF, 1 EVERY 1 DAYS
     Route: 065
  41. CORTIFOAM [Suspect]
     Active Substance: HYDROCORTISONE ACETATE
     Dosage: 1 DF, 1 EVERY 1 DAYS
     Route: 048
  42. CORTIFOAM [Suspect]
     Active Substance: HYDROCORTISONE ACETATE
     Indication: Deep vein thrombosis
     Route: 048
  43. CORTIFOAM [Suspect]
     Active Substance: HYDROCORTISONE ACETATE
     Indication: Colitis ulcerative
     Route: 048
  44. CORTIFOAM [Suspect]
     Active Substance: HYDROCORTISONE ACETATE
     Route: 048
  45. CORTIFOAM [Suspect]
     Active Substance: HYDROCORTISONE ACETATE
     Route: 048
  46. CORTIFOAM [Suspect]
     Active Substance: HYDROCORTISONE ACETATE
     Indication: Deep vein thrombosis
     Route: 065
  47. CORTIFOAM [Suspect]
     Active Substance: HYDROCORTISONE ACETATE
     Route: 065
  48. CORTIFOAM [Suspect]
     Active Substance: HYDROCORTISONE ACETATE
     Route: 048
  49. HYDROCORTISONE [Suspect]
     Active Substance: HYDROCORTISONE
     Indication: Product used for unknown indication
     Route: 048
  50. CORTISONE [Suspect]
     Active Substance: CORTISONE
     Route: 048
  51. CORTISONE [Suspect]
     Active Substance: CORTISONE
     Dosage: 8 DF, 1 EVERY 1 DAYS
     Route: 048
  52. CORTISONE [Suspect]
     Active Substance: CORTISONE
     Indication: Crohn^s disease
     Route: 048
  53. CORTISONE [Suspect]
     Active Substance: CORTISONE
     Route: 042
  54. CORTISONE [Suspect]
     Active Substance: CORTISONE
     Indication: Colitis ulcerative
     Route: 048
  55. CORTISONE [Suspect]
     Active Substance: CORTISONE
     Route: 048
  56. CORTISONE [Suspect]
     Active Substance: CORTISONE
     Route: 048
  57. CORTISONE [Suspect]
     Active Substance: CORTISONE
     Route: 065
  58. CRESTOR [Suspect]
     Active Substance: ROSUVASTATIN CALCIUM
     Indication: Product used for unknown indication
     Route: 065
  59. CRESTOR [Suspect]
     Active Substance: ROSUVASTATIN CALCIUM
     Indication: Blood cholesterol increased
     Route: 065
  60. CRESTOR [Suspect]
     Active Substance: ROSUVASTATIN CALCIUM
     Indication: Ill-defined disorder
     Route: 065
  61. DAPAGLIFLOZIN [Suspect]
     Active Substance: DAPAGLIFLOZIN
     Indication: Product used for unknown indication
     Route: 065
  62. DAPAGLIFLOZIN [Suspect]
     Active Substance: DAPAGLIFLOZIN
     Indication: Ill-defined disorder
  63. ESCITALOPRAM [Suspect]
     Active Substance: ESCITALOPRAM OXALATE
     Indication: Product used for unknown indication
     Route: 065
  64. ENTYVIO [Suspect]
     Active Substance: VEDOLIZUMAB
     Dosage: 1 DF, 1 EVERY 1 DAYS
     Route: 048
  65. ENTYVIO [Suspect]
     Active Substance: VEDOLIZUMAB
     Dosage: 1 DF, 1 EVERY 1 DAYS
     Route: 048
  66. ENTYVIO [Suspect]
     Active Substance: VEDOLIZUMAB
     Route: 065
  67. ENTYVIO [Suspect]
     Active Substance: VEDOLIZUMAB
     Indication: Product used for unknown indication
     Route: 048
  68. ENTYVIO [Suspect]
     Active Substance: VEDOLIZUMAB
     Route: 065
  69. ENTYVIO [Suspect]
     Active Substance: VEDOLIZUMAB
     Indication: Colitis ulcerative
     Route: 042
  70. ENTYVIO [Suspect]
     Active Substance: VEDOLIZUMAB
     Indication: Deep vein thrombosis
     Route: 042
  71. ENTYVIO [Suspect]
     Active Substance: VEDOLIZUMAB
     Route: 042
  72. ENTYVIO [Suspect]
     Active Substance: VEDOLIZUMAB
     Route: 048
  73. ENTYVIO [Suspect]
     Active Substance: VEDOLIZUMAB
     Route: 065
  74. ENTYVIO [Suspect]
     Active Substance: VEDOLIZUMAB
     Route: 065
  75. EPINEPHRINE HYDROCHLORIDE [Suspect]
     Active Substance: EPINEPHRINE HYDROCHLORIDE
     Indication: Product used for unknown indication
     Route: 065
  76. ESOMEPRAZOLE MAGNESIUM [Suspect]
     Active Substance: ESOMEPRAZOLE MAGNESIUM
     Indication: Gastritis
     Route: 048
  77. FELODIPINE [Suspect]
     Active Substance: FELODIPINE
     Indication: Hypertension
     Route: 048
  78. FUROSEMIDE [Suspect]
     Active Substance: FUROSEMIDE
     Indication: Product used for unknown indication
     Route: 065
  79. GABAPENTIN [Suspect]
     Active Substance: GABAPENTIN
     Indication: Product used for unknown indication
     Route: 065
  80. HYDROCORTISONE [Suspect]
     Active Substance: HYDROCORTISONE
     Dosage: 1 DF, 1 EVERY 1 DAYS
     Route: 048
  81. HYDROCORTISONE [Suspect]
     Active Substance: HYDROCORTISONE
     Dosage: 1 DF, 1 EVERY 1 DAYS
     Route: 065
  82. HYDROCORTISONE [Suspect]
     Active Substance: HYDROCORTISONE
     Route: 048
  83. HYDROCORTISONE [Suspect]
     Active Substance: HYDROCORTISONE
     Route: 065
  84. HYDROCORTISONE [Suspect]
     Active Substance: HYDROCORTISONE
     Indication: Colitis ulcerative
     Route: 065
  85. HYDROCORTISONE [Suspect]
     Active Substance: HYDROCORTISONE
     Route: 065
  86. HYDROCORTISONE [Suspect]
     Active Substance: HYDROCORTISONE
     Route: 048
  87. HYDROCORTISONE [Suspect]
     Active Substance: HYDROCORTISONE
     Route: 065
  88. INFLIXIMAB [Suspect]
     Active Substance: INFLIXIMAB
     Route: 042
  89. INFLIXIMAB [Suspect]
     Active Substance: INFLIXIMAB
     Route: 042
  90. INFLIXIMAB [Suspect]
     Active Substance: INFLIXIMAB
     Indication: Colitis ulcerative
     Route: 042
  91. INFLIXIMAB [Suspect]
     Active Substance: INFLIXIMAB
     Indication: Product used for unknown indication
     Route: 042
  92. INFLIXIMAB [Suspect]
     Active Substance: INFLIXIMAB
     Route: 042
  93. INFLIXIMAB [Suspect]
     Active Substance: INFLIXIMAB
     Route: 042
  94. INFLIXIMAB [Suspect]
     Active Substance: INFLIXIMAB
     Route: 042
  95. INFLIXIMAB [Suspect]
     Active Substance: INFLIXIMAB
     Route: 042
  96. INFLIXIMAB [Suspect]
     Active Substance: INFLIXIMAB
     Route: 042
  97. INFLIXIMAB [Suspect]
     Active Substance: INFLIXIMAB
     Indication: Crohn^s disease
     Route: 065
  98. INFLIXIMAB [Suspect]
     Active Substance: INFLIXIMAB
     Route: 065
  99. INFLIXIMAB [Suspect]
     Active Substance: INFLIXIMAB
     Route: 065
  100. INFLIXIMAB [Suspect]
     Active Substance: INFLIXIMAB
     Route: 065
  101. LEVOTHYROXINE SODIUM [Suspect]
     Active Substance: LEVOTHYROXINE SODIUM
     Indication: Product used for unknown indication
     Route: 065
  102. LISDEXAMFETAMINE DIMESYLATE [Suspect]
     Active Substance: LISDEXAMFETAMINE DIMESYLATE
     Indication: Product used for unknown indication
     Route: 065
  103. METFORMIN [Suspect]
     Active Substance: METFORMIN HYDROCHLORIDE
     Indication: Product used for unknown indication
     Route: 065
  104. MEBEVERINE HYDROCHLORIDE [Suspect]
     Active Substance: MEBEVERINE HYDROCHLORIDE
     Indication: Product used for unknown indication
     Route: 065
  105. MEBEVERINE HYDROCHLORIDE [Suspect]
     Active Substance: MEBEVERINE HYDROCHLORIDE
     Route: 065
  106. MESALAMINE [Suspect]
     Active Substance: MESALAMINE
     Dosage: 2.4 G, 1 EVERY 1 DAY
     Route: 065
  107. MESALAMINE [Suspect]
     Active Substance: MESALAMINE
     Route: 065
  108. MESALAMINE [Suspect]
     Active Substance: MESALAMINE
     Dosage: 4.8 G, 1 EVERY 1 DAY
     Route: 065
  109. MESALAMINE [Suspect]
     Active Substance: MESALAMINE
     Route: 048
  110. MESALAMINE [Suspect]
     Active Substance: MESALAMINE
     Indication: Product used for unknown indication
     Route: 065
  111. MESALAMINE [Suspect]
     Active Substance: MESALAMINE
     Dosage: 6 DF, 1 EVERY 1 DAYS
     Route: 065
  112. MESALAMINE [Suspect]
     Active Substance: MESALAMINE
     Indication: Colitis ulcerative
     Route: 065
  113. MESALAMINE [Suspect]
     Active Substance: MESALAMINE
     Route: 065
  114. MESALAMINE [Suspect]
     Active Substance: MESALAMINE
     Dosage: 1 DF, 1 EVERY 1 DAYS
     Route: 048
  115. MESALAMINE [Suspect]
     Active Substance: MESALAMINE
     Dosage: 2.4 G, 1 EVERY 1 DAYS
     Route: 065
  116. MESALAMINE [Suspect]
     Active Substance: MESALAMINE
     Dosage: 2.4 G, 1 EVERY 1 DAYS
     Route: 065
  117. MESALAMINE [Suspect]
     Active Substance: MESALAMINE
     Route: 065
  118. MESALAMINE [Suspect]
     Active Substance: MESALAMINE
     Dosage: 3 G, 1 EVERY 1 DAYS
     Route: 065
  119. MESALAMINE [Suspect]
     Active Substance: MESALAMINE
     Dosage: 3 DF, 1 EVERY 1 DAYS
     Route: 065
  120. MESALAMINE [Suspect]
     Active Substance: MESALAMINE
     Route: 065
  121. MESALAMINE [Suspect]
     Active Substance: MESALAMINE
     Route: 065
  122. MESALAMINE [Suspect]
     Active Substance: MESALAMINE
     Dosage: 4.8 MG, 1 EVERY 1 DAYS
     Route: 065
  123. MESALAMINE [Suspect]
     Active Substance: MESALAMINE
     Route: 065
  124. MESALAMINE [Suspect]
     Active Substance: MESALAMINE
     Route: 065
  125. MESALAMINE [Suspect]
     Active Substance: MESALAMINE
     Route: 065
  126. MESALAMINE [Suspect]
     Active Substance: MESALAMINE
     Route: 065
  127. MESALAMINE [Suspect]
     Active Substance: MESALAMINE
     Dosage: 6 DF, 1 EVERY 1 DAYS
     Route: 048
  128. MESALAMINE [Suspect]
     Active Substance: MESALAMINE
     Route: 048
  129. MESALAMINE [Suspect]
     Active Substance: MESALAMINE
     Route: 065
  130. MESALAMINE [Suspect]
     Active Substance: MESALAMINE
     Route: 048
  131. MESALAMINE [Suspect]
     Active Substance: MESALAMINE
     Route: 048
  132. MESALAMINE [Suspect]
     Active Substance: MESALAMINE
     Route: 048
  133. MESALAMINE [Suspect]
     Active Substance: MESALAMINE
     Route: 048
  134. MESALAMINE [Suspect]
     Active Substance: MESALAMINE
     Route: 048
  135. MESALAMINE [Suspect]
     Active Substance: MESALAMINE
     Indication: Colitis ulcerative
     Route: 065
  136. MESALAMINE [Suspect]
     Active Substance: MESALAMINE
     Indication: Product used for unknown indication
     Route: 065
  137. MESALAMINE [Suspect]
     Active Substance: MESALAMINE
     Route: 065
  138. MESALAMINE [Suspect]
     Active Substance: MESALAMINE
     Route: 065
  139. MESALAMINE [Suspect]
     Active Substance: MESALAMINE
     Route: 065
  140. MESALAMINE [Suspect]
     Active Substance: MESALAMINE
     Route: 065
  141. MESALAMINE [Suspect]
     Active Substance: MESALAMINE
     Route: 065
  142. MESALAMINE [Suspect]
     Active Substance: MESALAMINE
     Route: 065
  143. MESALAMINE [Suspect]
     Active Substance: MESALAMINE
     Route: 065
  144. OMEPRAZOLE [Suspect]
     Active Substance: OMEPRAZOLE
     Indication: Product used for unknown indication
     Route: 065
  145. OMEPRAZOLE [Suspect]
     Active Substance: OMEPRAZOLE
     Indication: Gastritis
     Route: 065
  146. OXYCODONE HYDROCHLORIDE [Suspect]
     Active Substance: OXYCODONE HYDROCHLORIDE
     Indication: Product used for unknown indication
     Route: 065
  147. PARA-AMINOSALICYLIC ACID [Suspect]
     Active Substance: AMINOSALICYLIC ACID
     Indication: Product used for unknown indication
     Route: 048
  148. PREDNISONE [Suspect]
     Active Substance: PREDNISONE
     Dosage: 40 MG, 1 EVERY 1 DAYS
     Route: 065
  149. PREDNISONE [Suspect]
     Active Substance: PREDNISONE
     Dosage: 50 MG,1 EVERY 1 DAYS
     Route: 065
  150. PREDNISONE [Suspect]
     Active Substance: PREDNISONE
     Route: 065
  151. PREDNISONE [Suspect]
     Active Substance: PREDNISONE
     Route: 065
  152. PREDNISONE [Suspect]
     Active Substance: PREDNISONE
     Indication: Colitis ulcerative
     Route: 065
  153. PREDNISONE [Suspect]
     Active Substance: PREDNISONE
     Route: 065
  154. PREDNISONE [Suspect]
     Active Substance: PREDNISONE
     Route: 065
  155. PULMICORT TURBUHALER [Suspect]
     Active Substance: BUDESONIDE
     Route: 048
  156. PULMICORT TURBUHALER [Suspect]
     Active Substance: BUDESONIDE
     Route: 048
  157. PULMICORT TURBUHALER [Suspect]
     Active Substance: BUDESONIDE
     Route: 048
  158. PULMICORT TURBUHALER [Suspect]
     Active Substance: BUDESONIDE
     Route: 065
  159. PULMICORT TURBUHALER [Suspect]
     Active Substance: BUDESONIDE
     Indication: Product used for unknown indication
     Dosage: 8 DF, 1 EVERY 1 DAYS
     Route: 048
  160. PULMICORT TURBUHALER [Suspect]
     Active Substance: BUDESONIDE
     Route: 048
  161. PULMICORT TURBUHALER [Suspect]
     Active Substance: BUDESONIDE
     Indication: Product used for unknown indication
     Route: 048
  162. PULMICORT TURBUHALER [Suspect]
     Active Substance: BUDESONIDE
     Indication: Colitis ulcerative
     Route: 065
  163. PULMICORT TURBUHALER [Suspect]
     Active Substance: BUDESONIDE
     Route: 065
  164. PULMICORT TURBUHALER [Suspect]
     Active Substance: BUDESONIDE
     Route: 065
  165. PULMICORT TURBUHALER [Suspect]
     Active Substance: BUDESONIDE
     Route: 065
  166. PULMICORT TURBUHALER [Suspect]
     Active Substance: BUDESONIDE
     Indication: Colitis ulcerative
  167. SULFASALAZINE [Suspect]
     Active Substance: SULFASALAZINE
     Dosage: 3 MG, 1 EVERY 1 DAYS
     Route: 048
  168. SULFASALAZINE [Suspect]
     Active Substance: SULFASALAZINE
     Dosage: 5 MG, 1 EVERY 1 DAYS
     Route: 048
  169. SULFASALAZINE [Suspect]
     Active Substance: SULFASALAZINE
     Indication: Colitis ulcerative
     Route: 065
  170. SULFASALAZINE [Suspect]
     Active Substance: SULFASALAZINE
     Indication: Product used for unknown indication
     Route: 065
  171. SULFASALAZINE [Suspect]
     Active Substance: SULFASALAZINE
     Route: 065
  172. SULFASALAZINE [Suspect]
     Active Substance: SULFASALAZINE
     Route: 065
  173. SULFASALAZINE [Suspect]
     Active Substance: SULFASALAZINE
     Route: 065
  174. SULFASALAZINE [Suspect]
     Active Substance: SULFASALAZINE
     Route: 065
  175. SULFASALAZINE [Suspect]
     Active Substance: SULFASALAZINE
     Route: 065
  176. SULFASALAZINE [Suspect]
     Active Substance: SULFASALAZINE
     Route: 065
  177. SULFASALAZINE [Suspect]
     Active Substance: SULFASALAZINE
     Route: 065
  178. SULFASALAZINE [Suspect]
     Active Substance: SULFASALAZINE
     Route: 065
  179. SULFASALAZINE [Suspect]
     Active Substance: SULFASALAZINE
     Route: 065
  180. TOZINAMERAN [Suspect]
     Active Substance: TOZINAMERAN
     Indication: Product used for unknown indication
     Route: 065
  181. VITAMIN D3 [Suspect]
     Active Substance: CHOLECALCIFEROL
     Indication: Product used for unknown indication
     Route: 065
  182. VITAMIN D3 [Suspect]
     Active Substance: CHOLECALCIFEROL
     Route: 065
  183. WARFARIN [Suspect]
     Active Substance: WARFARIN
     Indication: Deep vein thrombosis
     Route: 065
  184. WARFARIN SODIUM [Suspect]
     Active Substance: WARFARIN SODIUM
     Dosage: 1 DF, 1 EVERY 1 DAYS
     Route: 048
  185. WARFARIN SODIUM [Suspect]
     Active Substance: WARFARIN SODIUM
     Indication: Deep vein thrombosis
     Dosage: 8 DF, 1 EVERY 1 DAYS
     Route: 048
  186. WARFARIN SODIUM [Suspect]
     Active Substance: WARFARIN SODIUM
     Route: 048
  187. WARFARIN SODIUM [Suspect]
     Active Substance: WARFARIN SODIUM
     Route: 048
  188. WARFARIN SODIUM [Suspect]
     Active Substance: WARFARIN SODIUM
     Indication: Colitis ulcerative
     Route: 065
  189. WARFARIN SODIUM [Suspect]
     Active Substance: WARFARIN SODIUM
     Route: 065
  190. WARFARIN SODIUM [Suspect]
     Active Substance: WARFARIN SODIUM
     Route: 065
  191. ACETAMINOPHEN [Concomitant]
     Active Substance: ACETAMINOPHEN
     Indication: Ill-defined disorder
     Route: 065
  192. ACETAMINOPHEN [Concomitant]
     Active Substance: ACETAMINOPHEN
     Indication: Product used for unknown indication
     Route: 065
  193. AMLODIPINE [Concomitant]
     Active Substance: AMLODIPINE BESYLATE
     Route: 065
  194. AMLODIPINE [Concomitant]
     Active Substance: AMLODIPINE BESYLATE
     Indication: Product used for unknown indication
     Route: 048
  195. AMLODIPINE BESYLATE [Concomitant]
     Active Substance: AMLODIPINE BESYLATE
     Indication: Product used for unknown indication
     Route: 048
  196. ATORVASTATIN CALCIUM [Concomitant]
     Active Substance: ATORVASTATIN CALCIUM
     Route: 065
  197. ATORVASTATIN CALCIUM [Concomitant]
     Active Substance: ATORVASTATIN CALCIUM
     Indication: Product used for unknown indication
     Route: 048
  198. BETNOVATE [Concomitant]
     Active Substance: BETAMETHASONE
     Indication: Product used for unknown indication
     Route: 065
  199. BISOPROLOL [Concomitant]
     Active Substance: BISOPROLOL
     Indication: Product used for unknown indication
     Route: 048
  200. CALCIUM CARBONATE\CHOLECALCIFEROL [Concomitant]
     Active Substance: CALCIUM CARBONATE\CHOLECALCIFEROL
     Indication: Product used for unknown indication
     Route: 065
  201. Calcium carbonate;Magnesium carbonate [Concomitant]
     Indication: Product used for unknown indication
     Route: 065
  202. Calcium carbonate;Sodium alginate;Sodium bicarbonate [Concomitant]
     Indication: Product used for unknown indication
     Route: 065
  203. CITALOPRAM HYDROBROMIDE [Concomitant]
     Active Substance: CITALOPRAM HYDROBROMIDE
     Indication: Product used for unknown indication
     Route: 065
  204. CLOBETASONE BUTYRATE [Concomitant]
     Active Substance: CLOBETASONE BUTYRATE
     Indication: Product used for unknown indication
     Route: 065
  205. DORZOLAMIDE HYDROCHLORIDE [Concomitant]
     Active Substance: DORZOLAMIDE HYDROCHLORIDE
     Indication: Product used for unknown indication
     Route: 065
  206. EMPAGLIFLOZIN [Concomitant]
     Active Substance: EMPAGLIFLOZIN
     Indication: Product used for unknown indication
     Route: 065
  207. FESOTERODINE FUMARATE [Concomitant]
     Active Substance: FESOTERODINE FUMARATE
     Indication: Product used for unknown indication
     Route: 048
  208. FOLIC ACID [Concomitant]
     Active Substance: FOLIC ACID
     Indication: Deep vein thrombosis
     Route: 048
  209. HUMIRA [Concomitant]
     Active Substance: ADALIMUMAB
     Indication: Colitis ulcerative
     Route: 048
  210. HUMIRA [Concomitant]
     Active Substance: ADALIMUMAB
     Route: 048
  211. HUMIRA [Concomitant]
     Active Substance: ADALIMUMAB
     Route: 048
  212. HUMIRA [Concomitant]
     Active Substance: ADALIMUMAB
     Route: 065
  213. HUMIRA [Concomitant]
     Active Substance: ADALIMUMAB
     Route: 065
  214. HUMIRA [Concomitant]
     Active Substance: ADALIMUMAB
     Indication: Deep vein thrombosis
     Route: 048
  215. HUMIRA [Concomitant]
     Active Substance: ADALIMUMAB
     Indication: Crohn^s disease
     Route: 065
  216. HUMIRA [Concomitant]
     Active Substance: ADALIMUMAB
     Route: 065
  217. HUMIRA [Concomitant]
     Active Substance: ADALIMUMAB
     Route: 065
  218. HUMIRA [Concomitant]
     Active Substance: ADALIMUMAB
     Route: 065
  219. LANSOPRAZOLE [Concomitant]
     Active Substance: LANSOPRAZOLE
     Indication: Product used for unknown indication
     Route: 065
  220. LATANOPROST [Concomitant]
     Active Substance: LATANOPROST
     Route: 065
  221. LATANOPROST [Concomitant]
     Active Substance: LATANOPROST
     Indication: Product used for unknown indication
     Route: 047
  222. LYRICA [Concomitant]
     Active Substance: PREGABALIN
     Indication: Product used for unknown indication
     Route: 065
  223. POLYETHYLENE GLYCOL 3350\POTASSIUM CHLORIDE\SODIUM BICARBONATE\SODIUM [Concomitant]
     Active Substance: POLYETHYLENE GLYCOL 3350\POTASSIUM CHLORIDE\SODIUM BICARBONATE\SODIUM CHLORIDE
     Indication: Product used for unknown indication
     Route: 065
  224. POLYETHYLENE GLYCOL 3350\POTASSIUM CHLORIDE\SODIUM BICARBONATE\SODIUM [Concomitant]
     Active Substance: POLYETHYLENE GLYCOL 3350\POTASSIUM CHLORIDE\SODIUM BICARBONATE\SODIUM CHLORIDE
     Route: 065
  225. POLYETHYLENE GLYCOL 3350\POTASSIUM CHLORIDE\SODIUM BICARBONATE\SODIUM [Concomitant]
     Active Substance: POLYETHYLENE GLYCOL 3350\POTASSIUM CHLORIDE\SODIUM BICARBONATE\SODIUM CHLORIDE
     Route: 065
  226. METHOTREXATE [Concomitant]
     Active Substance: METHOTREXATE
     Indication: Colitis ulcerative
     Route: 065
  227. METHOTREXATE [Concomitant]
     Active Substance: METHOTREXATE
     Route: 065
  228. METHOTREXATE [Concomitant]
     Active Substance: METHOTREXATE
     Route: 065
  229. METHOTREXATE [Concomitant]
     Active Substance: METHOTREXATE
     Route: 065
  230. METHOTREXATE [Concomitant]
     Active Substance: METHOTREXATE
     Route: 065
  231. NITROFURANTOIN [Concomitant]
     Active Substance: NITROFURANTOIN
     Indication: Product used for unknown indication
     Route: 065
  232. PARAFFIN [Concomitant]
     Active Substance: PARAFFIN
     Indication: Product used for unknown indication
     Route: 065
  233. PRAVASTATIN [Concomitant]
     Active Substance: PRAVASTATIN
     Indication: Product used for unknown indication
     Route: 065
  234. RAMIPRIL [Concomitant]
     Active Substance: RAMIPRIL
     Indication: Ill-defined disorder
     Route: 065
  235. RIVAROXABAN [Concomitant]
     Active Substance: RIVAROXABAN
     Indication: Product used for unknown indication
     Route: 065
  236. TAMSULOSIN HYDROCHLORIDE [Concomitant]
     Active Substance: TAMSULOSIN HYDROCHLORIDE
     Indication: Ill-defined disorder
     Route: 065
  237. TETRAHYDROZOLINE HYDROCHLORIDE [Concomitant]
     Active Substance: TETRAHYDROZOLINE HYDROCHLORIDE
     Indication: Product used for unknown indication
     Route: 065
  238. XELJANZ [Concomitant]
     Active Substance: TOFACITINIB CITRATE
     Indication: Colitis ulcerative
     Route: 048
  239. XELJANZ [Concomitant]
     Active Substance: TOFACITINIB CITRATE
     Route: 048

REACTIONS (50)
  - Abdominal discomfort [Not Recovered/Not Resolved]
  - Arthritis [Not Recovered/Not Resolved]
  - Bronchiectasis [Not Recovered/Not Resolved]
  - Burns second degree [Not Recovered/Not Resolved]
  - COVID-19 [Not Recovered/Not Resolved]
  - Cardiac murmur [Not Recovered/Not Resolved]
  - Catarrh [Not Recovered/Not Resolved]
  - Cerebrovascular accident [Not Recovered/Not Resolved]
  - Colitis ulcerative [Not Recovered/Not Resolved]
  - Condition aggravated [Not Recovered/Not Resolved]
  - Confusional state [Not Recovered/Not Resolved]
  - Deep vein thrombosis [Not Recovered/Not Resolved]
  - Depression [Not Recovered/Not Resolved]
  - Dysgeusia [Not Recovered/Not Resolved]
  - Eczema [Not Recovered/Not Resolved]
  - Fatigue [Not Recovered/Not Resolved]
  - Frequent bowel movements [Not Recovered/Not Resolved]
  - Gingival pain [Not Recovered/Not Resolved]
  - Haematochezia [Not Recovered/Not Resolved]
  - Headache [Not Recovered/Not Resolved]
  - Hypopnoea [Not Recovered/Not Resolved]
  - Migraine [Not Recovered/Not Resolved]
  - Nightmare [Not Recovered/Not Resolved]
  - Pain [Not Recovered/Not Resolved]
  - Pain in extremity [Not Recovered/Not Resolved]
  - Palpitations [Not Recovered/Not Resolved]
  - Parosmia [Not Recovered/Not Resolved]
  - Pulmonary embolism [Not Recovered/Not Resolved]
  - Pyrexia [Not Recovered/Not Resolved]
  - Rash [Not Recovered/Not Resolved]
  - Rectal haemorrhage [Not Recovered/Not Resolved]
  - Rhinitis [Not Recovered/Not Resolved]
  - Somnolence [Not Recovered/Not Resolved]
  - Steroid dependence [Not Recovered/Not Resolved]
  - Stress [Not Recovered/Not Resolved]
  - Swollen tongue [Not Recovered/Not Resolved]
  - Systemic lupus erythematosus [Not Recovered/Not Resolved]
  - Tinnitus [Not Recovered/Not Resolved]
  - Weight decreased [Not Recovered/Not Resolved]
  - Loss of personal independence in daily activities [Not Recovered/Not Resolved]
  - Tubulointerstitial nephritis [Not Recovered/Not Resolved]
  - Impaired work ability [Not Recovered/Not Resolved]
  - Vertigo [Not Recovered/Not Resolved]
  - Accidental overdose [Not Recovered/Not Resolved]
  - Drug ineffective [Not Recovered/Not Resolved]
  - Medication error [Not Recovered/Not Resolved]
  - Intentional product use issue [Not Recovered/Not Resolved]
  - Product use in unapproved indication [Not Recovered/Not Resolved]
  - Inappropriate schedule of product administration [Not Recovered/Not Resolved]
  - Off label use [Not Recovered/Not Resolved]
